FAERS Safety Report 4550956-1 (Version None)
Quarter: 2004Q4

REPORT INFORMATION
  Report Type: 
  Country: None (occurrence: None)
  Receive Date: 20041217
  Receipt Date: 20040805
  Transmission Date: 20050328
  Serious: No
  Sender: FDA-Public Use
  Company Number: 2004-BP-06600BP

PATIENT
  Age: 72 Year
  Sex: Female

DRUGS (9)
  1. SPIRIVA [Suspect]
     Indication: CHRONIC OBSTRUCTIVE AIRWAYS DISEASE
     Dosage: 18 MCG (18 MCG), IH
     Route: 055
     Dates: start: 20040716
  2. ADVAIR DISKUS 100/50 [Suspect]
     Indication: CHRONIC OBSTRUCTIVE AIRWAYS DISEASE
     Dosage: IH
     Route: 055
  3. ALBUTEROL [Concomitant]
  4. LEVOXYL [Concomitant]
  5. HYZAAR [Concomitant]
  6. ALLERGY-D (ALLEGRA-D - SLOW RELEASE) [Concomitant]
  7. HYDROCHLOROTHIAZIDE [Concomitant]
  8. ADVAIR DISKUS (SERETIDE MITE) [Concomitant]
  9. ROSULA GEL [Concomitant]

REACTIONS (1)
  - FEELING ABNORMAL [None]
